FAERS Safety Report 6703855-0 (Version None)
Quarter: 2010Q2

REPORT INFORMATION
  Report Type: 
  Country: None (occurrence: None)
  Receive Date: 20100430
  Receipt Date: 20100420
  Transmission Date: 20101027
  Serious: Yes (Hospitalization)
  Sender: FDA-Public Use
  Company Number: NO-PFIZER INC-2010049507

PATIENT
  Sex: Female

DRUGS (1)
  1. XANOR [Suspect]
     Dosage: 3-6 MG AS NEEDED

REACTIONS (2)
  - DRUG DISPENSING ERROR [None]
  - DRUG TOXICITY [None]
